FAERS Safety Report 12708667 (Version 1)
Quarter: 2016Q3

REPORT INFORMATION
  Report Type: Spontaneous
  Country: CN (occurrence: CN)
  Receive Date: 20160901
  Receipt Date: 20160901
  Transmission Date: 20161109
  Serious: Yes (Other)
  Sender: FDA-Public Use
  Company Number: CN-VIIV HEALTHCARE LIMITED-CN2016GSK123597

PATIENT
  Age: 60 Year
  Sex: Male

DRUGS (4)
  1. LAMIVUDINE. [Suspect]
     Active Substance: LAMIVUDINE
     Dosage: 100 MG, UNK
     Route: 048
     Dates: start: 2006
  2. ADEFOVIR DIPIVOXIL. [Concomitant]
     Active Substance: ADEFOVIR DIPIVOXIL
     Indication: ANTIVIRAL TREATMENT
     Dosage: 10 MG, UNK
     Dates: start: 2006
  3. ALBUMIN [Concomitant]
     Active Substance: ALBUMIN HUMAN
     Indication: PRODUCT USED FOR UNKNOWN INDICATION
  4. LAMIVUDINE. [Suspect]
     Active Substance: LAMIVUDINE
     Indication: ANTIVIRAL TREATMENT
     Dosage: 100 MG, QD
     Route: 048

REACTIONS (9)
  - Gastric ulcer [Unknown]
  - Gastrolithiasis [Unknown]
  - Viral mutation identified [Unknown]
  - Upper gastrointestinal haemorrhage [Unknown]
  - Hepatitis B DNA increased [Unknown]
  - Transaminases increased [Unknown]
  - Pathogen resistance [Unknown]
  - Drug resistance [Unknown]
  - Hepatic cancer [Unknown]

NARRATIVE: CASE EVENT DATE: 200209
